FAERS Safety Report 24561473 (Version 3)
Quarter: 2025Q4

REPORT INFORMATION
  Report Type: Spontaneous
  Country: EU (occurrence: EU)
  Receive Date: 20241029
  Receipt Date: 20251028
  Transmission Date: 20260119
  Serious: Yes (Other)
  Sender: ELI LILLY AND COMPANY
  Company Number: EU-ELI_LILLY_AND_COMPANY-ES202410012064

PATIENT
  Age: 56 Year
  Sex: Male
  Weight: 145 kg

DRUGS (4)
  1. MOUNJARO [Suspect]
     Active Substance: TIRZEPATIDE
     Indication: Weight control
     Dosage: 5 MG, WEEKLY (1/W)
     Route: 058
     Dates: start: 20240701, end: 20241002
  2. MOUNJARO [Suspect]
     Active Substance: TIRZEPATIDE
     Indication: Weight control
     Dosage: 5 MG, WEEKLY (1/W)
     Route: 058
     Dates: start: 20240701, end: 20241002
  3. MOUNJARO [Suspect]
     Active Substance: TIRZEPATIDE
     Indication: Weight control
     Dosage: 5 MG, WEEKLY (1/W)
     Route: 058
     Dates: start: 20240701, end: 20241002
  4. MOUNJARO [Suspect]
     Active Substance: TIRZEPATIDE
     Indication: Weight control
     Dosage: 5 MG, WEEKLY (1/W)
     Route: 058
     Dates: start: 20240701, end: 20241002

REACTIONS (6)
  - Hydronephrosis [Recovered/Resolved]
  - Pyelonephritis [Unknown]
  - Nephrolithiasis [Recovering/Resolving]
  - Pyelonephritis acute [Recovered/Resolved]
  - Renal colic [Unknown]
  - Crystal urine present [Unknown]

NARRATIVE: CASE EVENT DATE: 20240101
